FAERS Safety Report 7639544-8 (Version None)
Quarter: 2011Q3

REPORT INFORMATION
  Report Type: 
  Country: None (occurrence: None)
  Receive Date: 20110727
  Receipt Date: 20110720
  Transmission Date: 20111222
  Serious: Yes (Other)
  Sender: FDA-Public Use
  Company Number: JP-GLAXOSMITHKLINE-B0734663A

PATIENT
  Age: 61 Year
  Sex: Female

DRUGS (1)
  1. VALTREX [Suspect]
     Indication: HERPES SIMPLEX
     Dosage: 1000MG PER DAY
     Route: 048
     Dates: start: 20110715, end: 20110720

REACTIONS (3)
  - ANAPHYLACTIC REACTION [None]
  - LIP SWELLING [None]
  - FEELING ABNORMAL [None]
